FAERS Safety Report 6479292-3 (Version None)
Quarter: 2009Q4

REPORT INFORMATION
  Report Type: 
  Country: None (occurrence: None)
  Receive Date: 20091207
  Receipt Date: 20090221
  Transmission Date: 20100525
  Serious: No
  Sender: FDA-Public Use
  Company Number: US-AMGEN-KDL334994

PATIENT
  Sex: Male
  Weight: 27.6 kg

DRUGS (4)
  1. ENBREL [Suspect]
     Indication: JUVENILE ARTHRITIS
     Route: 058
     Dates: start: 20081205
  2. METHOTREXATE [Concomitant]
     Dates: start: 20080428
  3. NAPROXEN [Concomitant]
     Dates: start: 20081205
  4. INDOCIN [Concomitant]

REACTIONS (3)
  - ANXIETY [None]
  - HEADACHE [None]
  - PHARYNGITIS STREPTOCOCCAL [None]
